FAERS Safety Report 5223531-3 (Version None)
Quarter: 2007Q1

REPORT INFORMATION
  Report Type: 
  Country: None (occurrence: None)
  Receive Date: 20070125
  Receipt Date: 20070122
  Transmission Date: 20070707
  Serious: Yes (Other)
  Sender: FDA-Public Use
  Company Number: S06-USA-04431-01

PATIENT
  Age: 19 Year
  Sex: Female

DRUGS (5)
  1. LEXAPRO [Suspect]
     Indication: PANIC ATTACK
     Dosage: 10 MG QD PO
     Route: 048
     Dates: start: 20060905, end: 20061017
  2. LEXAPRO [Suspect]
     Indication: PANIC ATTACK
     Dosage: 5 MG QD PO
     Route: 048
     Dates: start: 20060822, end: 20060904
  3. LEXAPRO [Suspect]
     Indication: PANIC ATTACK
     Dosage: 20 MG QD PO
     Route: 048
     Dates: start: 20061018, end: 20061023
  4. LEXAPRO [Suspect]
     Indication: PANIC ATTACK
     Dosage: 10 MG QD PO
     Route: 048
     Dates: start: 20061024, end: 20061001
  5. ALLEGRA [Concomitant]

REACTIONS (2)
  - IRRITABILITY [None]
  - SELF-INJURIOUS IDEATION [None]
